FAERS Safety Report 5623858-7 (Version None)
Quarter: 2008Q1

REPORT INFORMATION
  Report Type: 
  Country: None (occurrence: None)
  Receive Date: 20080207
  Receipt Date: 20080124
  Transmission Date: 20080703
  Serious: Yes (Other)
  Sender: FDA-Public Use
  Company Number: 2008S1001313

PATIENT
  Age: 60 Year
  Sex: Female

DRUGS (5)
  1. SPIRACTIN (SPIRONOLACTONE) (25 MG) [Suspect]
     Indication: HYPERADRENOCORTICISM
     Dosage: 25 MG DAILY ORAL
     Route: 048
     Dates: start: 20070705
  2. MULTI B/00212701/ [Concomitant]
  3. FISH OIL [Concomitant]
  4. MAGNESIUM [Concomitant]
  5. ASPIRIN [Concomitant]

REACTIONS (4)
  - AMNESIA [None]
  - CONFUSIONAL STATE [None]
  - LETHARGY [None]
  - MUSCLE SPASMS [None]
